FAERS Safety Report 19819942 (Version 1)
Quarter: 2021Q3

REPORT INFORMATION
  Report Type: Spontaneous
  Country: US (occurrence: US)
  Receive Date: 20210913
  Receipt Date: 20210913
  Transmission Date: 20211014
  Serious: No
  Sender: FDA-Public Use
  Company Number: US-SA-2021SA293995

PATIENT
  Age: 16 Year
  Sex: Female

DRUGS (1)
  1. DUPIXENT [Suspect]
     Active Substance: DUPILUMAB
     Indication: DERMATITIS ATOPIC
     Dosage: UNK
     Route: 058
     Dates: start: 20210828

REACTIONS (9)
  - Hordeolum [Unknown]
  - Injection site erythema [Unknown]
  - Lacrimation increased [Unknown]
  - Skin discolouration [Unknown]
  - Injection site swelling [Unknown]
  - Erythema [Unknown]
  - Skin fissures [Unknown]
  - Pruritus [Unknown]
  - Eye pruritus [Unknown]

NARRATIVE: CASE EVENT DATE: 20210828
